FAERS Safety Report 5138606-7 (Version None)
Quarter: 2006Q4

REPORT INFORMATION
  Report Type: 
  Country: None (occurrence: None)
  Receive Date: 20061030
  Receipt Date: 20061027
  Transmission Date: 20070319
  Serious: Yes (Other)
  Sender: FDA-Public Use
  Company Number: 2006SP004403

PATIENT
  Sex: Male

DRUGS (5)
  1. ADVAIR HFA [Suspect]
  2. ALBUTEROL SULATE [Suspect]
     Route: 055
  3. XOPENEX [Suspect]
  4. SINGULAIR [Suspect]
  5. PROVENTIL-HFA [Concomitant]

REACTIONS (1)
  - STATUS ASTHMATICUS [None]
